FAERS Safety Report 15091393 (Version 1)
Quarter: 2018Q2

REPORT INFORMATION
  Report Type: Spontaneous
  Country: FR (occurrence: FR)
  Receive Date: 20180629
  Receipt Date: 20180629
  Transmission Date: 20180711
  Serious: Yes (Hospitalization)
  Sender: FDA-Public Use
  Company Number: FR-PFIZER INC-2018257408

PATIENT
  Age: 15 Year
  Sex: Male

DRUGS (2)
  1. RIVOTRIL [Suspect]
     Active Substance: CLONAZEPAM
     Dosage: UNK
  2. LYRICA [Suspect]
     Active Substance: PREGABALIN
     Dosage: UNK

REACTIONS (4)
  - Abnormal behaviour [Recovering/Resolving]
  - Drug dependence [Not Recovered/Not Resolved]
  - Drug administered to patient of inappropriate age [Unknown]
  - Intentional product misuse [Not Recovered/Not Resolved]
